FAERS Safety Report 8514384-6 (Version None)
Quarter: 2012Q3

REPORT INFORMATION
  Report Type: 
  Country: None (occurrence: None)
  Receive Date: 20120717
  Receipt Date: 20120710
  Transmission Date: 20120928
  Serious: Yes (Hospitalization)
  Sender: FDA-Public Use
  Company Number: JP-009507513-1207JPN004178

PATIENT

DRUGS (11)
  1. INTERFERON BETA NOS [Suspect]
     Route: 041
     Dates: start: 20110214, end: 20110311
  2. LIVACT [Concomitant]
     Indication: HYPOALBUMINAEMIA
     Dosage: THE DIVIDED DOSE FREQUENCY IS UNCERTAIN.
     Route: 048
     Dates: start: 20100701, end: 20111108
  3. BASEN [Concomitant]
     Indication: DIABETES MELLITUS
     Dosage: THE DIVIDED DOSE FREQUENCY IS UNCERTAIN.
     Route: 048
     Dates: start: 20101216
  4. REBETOL [Suspect]
     Indication: HEPATITIS C
     Dosage: 200 MG IN THE MORNING AND 400 MG IN THE EVENING
     Route: 048
     Dates: start: 20101130, end: 20111121
  5. INTERFERON BETA NOS [Suspect]
     Route: 041
     Dates: start: 20110501, end: 20110507
  6. INTERFERON BETA NOS [Suspect]
     Route: 041
     Dates: start: 20110508, end: 20111121
  7. INTERFERON BETA NOS [Suspect]
     Route: 041
     Dates: start: 20110314, end: 20110430
  8. INTERFERON BETA NOS [Suspect]
     Indication: HEPATITIS C
     Route: 041
     Dates: start: 20101130, end: 20110212
  9. ALFAROL [Concomitant]
     Indication: OSTEOPOROSIS
     Dosage: 1 UNKNOWN UNITS
     Route: 048
     Dates: start: 20101125
  10. ALENDRONATE SODIUM [Concomitant]
     Route: 048
     Dates: start: 20100623
  11. NOVORAPID [Concomitant]
     Indication: DIABETES MELLITUS
     Dosage: THE DIVIDED DOSE FREQUENCY IS UNCERTAIN.
     Route: 051
     Dates: start: 20100623

REACTIONS (5)
  - RETINOPATHY [None]
  - PROTEINURIA [None]
  - PYREXIA [None]
  - DECREASED APPETITE [None]
  - PRURITUS [None]
